FAERS Safety Report 10008070 (Version 1)
Quarter: 2014Q1

REPORT INFORMATION
  Report Type: Spontaneous
  Country: CA (occurrence: CA)
  Receive Date: 20140313
  Receipt Date: 20140313
  Transmission Date: 20141002
  Serious: Yes (Other)
  Sender: FDA-Public Use
  Company Number: CA-IAC JAPAN XML-CAN-2014-0004747

PATIENT
  Age: 51 Year
  Sex: Female
  Weight: 63.49 kg

DRUGS (4)
  1. BUTRANS TRANSDERMAL PATCH [Suspect]
     Indication: PAIN
     Dosage: 5 MCG, Q1H
     Route: 062
     Dates: start: 201312, end: 201402
  2. BUTRANS TRANSDERMAL PATCH [Suspect]
     Dosage: 10 MCG, Q1H
     Route: 062
     Dates: start: 201402, end: 201402
  3. BUTRANS TRANSDERMAL PATCH [Suspect]
     Dosage: 5 MCG, Q1H
     Route: 062
     Dates: start: 201402, end: 20140302
  4. MULTIVITAMIN                       /00097801/ [Concomitant]
     Indication: PRODUCT USED FOR UNKNOWN INDICATION
     Dosage: UNK

REACTIONS (9)
  - Hallucination [Recovered/Resolved]
  - Arrhythmia [Recovered/Resolved]
  - Heart rate irregular [Not Recovered/Not Resolved]
  - Hot flush [Not Recovered/Not Resolved]
  - Palpitations [Not Recovered/Not Resolved]
  - Vision blurred [Recovered/Resolved]
  - Malaise [Not Recovered/Not Resolved]
  - Headache [Not Recovered/Not Resolved]
  - Hyperhidrosis [Not Recovered/Not Resolved]
